FAERS Safety Report 6817412-9 (Version None)
Quarter: 2010Q3

REPORT INFORMATION
  Report Type: 
  Country: None (occurrence: None)
  Receive Date: 20100706
  Receipt Date: 20100618
  Transmission Date: 20110219
  Serious: Yes (Hospitalization)
  Sender: FDA-Public Use
  Company Number: A0846487A

PATIENT
  Sex: Male
  Weight: 120.5 kg

DRUGS (1)
  1. AVANDIA [Suspect]
     Indication: DIABETES MELLITUS
     Route: 048
     Dates: start: 19990101, end: 20070101

REACTIONS (3)
  - CARDIAC DISORDER [None]
  - DEEP VEIN THROMBOSIS [None]
  - THROMBOSIS [None]
